FAERS Safety Report 4806898-7 (Version None)
Quarter: 2005Q4

REPORT INFORMATION
  Report Type: 
  Country: None (occurrence: None)
  Receive Date: 20051020
  Receipt Date: 20051020
  Transmission Date: 20060501
  Serious: Yes (Hospitalization)
  Sender: FDA-Public Use
  Company Number: None

PATIENT
  Age: 84 Year
  Sex: Male
  Weight: 77.5 kg

DRUGS (8)
  1. DOCUSATE SODIUM   100MG CAPSULES [Suspect]
  2. DOXYCYCLINE HYCLATE [Concomitant]
  3. HYDROXYZINE PAMOATE [Concomitant]
  4. LANOXIN [Concomitant]
  5. TRAMADOL HCL [Concomitant]
  6. ALBUTEROL SULFATE AND IPRATROPIUM BROMIDE [Concomitant]
  7. ACETAMINOPHEN [Concomitant]
  8. SILDENAFIL CITRATE [Concomitant]

REACTIONS (1)
  - RASH [None]
